FAERS Safety Report 5674867-3 (Version None)
Quarter: 2008Q2

REPORT INFORMATION
  Report Type: 
  Country: None (occurrence: None)
  Receive Date: 20080305
  Receipt Date: 20070328
  Transmission Date: 20081010
  Serious: Yes (Hospitalization)
  Sender: FDA-Public Use
  Company Number: BDI-009251

PATIENT
  Age: 70 Year
  Sex: Male

DRUGS (2)
  1. ISOVUE-370 [Suspect]
     Indication: LUNG NEOPLASM
     Dosage: 120ML ONCE INTRAVENOUS
     Route: 042
     Dates: start: 20070316, end: 20070316
  2. PREDNISONE TAB [Concomitant]

REACTIONS (1)
  - ANAPHYLACTOID REACTION [None]
